FAERS Safety Report 7473811-6 (Version None)
Quarter: 2011Q2

REPORT INFORMATION
  Report Type: 
  Country: None (occurrence: None)
  Receive Date: 20110511
  Receipt Date: 20110503
  Transmission Date: 20111010
  Serious: Yes (Hospitalization)
  Sender: FDA-Public Use
  Company Number: FR-BAXTER-2011BH015371

PATIENT
  Age: 70 Year
  Sex: Male

DRUGS (8)
  1. VINCRISTINE SULFATE [Suspect]
     Indication: B-CELL LYMPHOMA STAGE IV
     Route: 042
     Dates: start: 20110301, end: 20110301
  2. STILNOX                                 /FRA/ [Concomitant]
     Indication: PRODUCT USED FOR UNKNOWN INDICATION
     Route: 065
  3. DOXORUBICIN HCL [Suspect]
     Indication: B-CELL LYMPHOMA STAGE IV
     Route: 042
     Dates: start: 20110301, end: 20110301
  4. ALLOPURINOL [Concomitant]
     Indication: PRODUCT USED FOR UNKNOWN INDICATION
     Route: 065
  5. METHOTREXATE [Suspect]
     Indication: B-CELL LYMPHOMA STAGE IV
     Route: 042
     Dates: start: 20110301, end: 20110301
  6. CYCLOPHOSPHAMIDE [Suspect]
     Indication: B-CELL LYMPHOMA STAGE IV
     Route: 042
     Dates: start: 20110301, end: 20110301
  7. RITUXAN [Suspect]
     Indication: B-CELL LYMPHOMA STAGE IV
     Route: 042
     Dates: start: 20110301, end: 20110301
  8. INDAPAMIDE [Concomitant]
     Indication: PRODUCT USED FOR UNKNOWN INDICATION
     Route: 065

REACTIONS (1)
  - RENAL FAILURE [None]
